FAERS Safety Report 8551845-8 (Version None)
Quarter: 2012Q3

REPORT INFORMATION
  Report Type: 
  Country: None (occurrence: None)
  Receive Date: 20120730
  Receipt Date: 20120720
  Transmission Date: 20120928
  Serious: Yes (Hospitalization, Other)
  Sender: FDA-Public Use
  Company Number: JP-ABBOTT-12P-087-0952783-00

PATIENT
  Sex: Male
  Weight: 46 kg

DRUGS (5)
  1. HUMIRA [Suspect]
     Indication: CROHN'S DISEASE
     Route: 058
     Dates: start: 20120515, end: 20120515
  2. HUMIRA [Suspect]
  3. TPN [Concomitant]
     Indication: CROHN'S DISEASE
     Dosage: 3 DOSAGE FORMS DAILY
     Dates: start: 20120412, end: 20120703
  4. HUMIRA [Suspect]
     Dates: end: 20120626
  5. MESALAMINE [Concomitant]
     Indication: CROHN'S DISEASE
     Dates: start: 20120413

REACTIONS (2)
  - FISTULA [None]
  - ABDOMINAL ABSCESS [None]
